FAERS Safety Report 12824774 (Version 1)
Quarter: 2016Q4

REPORT INFORMATION
  Report Type: Spontaneous
  Country: DE (occurrence: DE)
  Receive Date: 20161007
  Receipt Date: 20161007
  Transmission Date: 20170207
  Serious: Yes (Hospitalization)
  Sender: FDA-Public Use
  Company Number: DE-SA-2016SA157268

PATIENT
  Age: 72 Year
  Sex: Male

DRUGS (6)
  1. ARAVA [Suspect]
     Active Substance: LEFLUNOMIDE
     Indication: RHEUMATOID ARTHRITIS
     Route: 048
     Dates: start: 20160610, end: 20160819
  2. MARCUMAR [Concomitant]
     Active Substance: PHENPROCOUMON
     Indication: POSTOPERATIVE CARE
     Dosage: DOSE: ACCORDING TO INR
     Route: 065
  3. ASPIRIN. [Concomitant]
     Active Substance: ASPIRIN
     Indication: CORONARY ARTERY DISEASE
  4. COLECALCIFEROL [Concomitant]
     Active Substance: CHOLECALCIFEROL
     Indication: VITAMIN D DEFICIENCY
     Route: 048
  5. METOPROLOL. [Concomitant]
     Active Substance: METOPROLOL
     Indication: HYPERTENSION
     Dosage: DOSE: 50 MG IN MORNING N 25 MG IN THE EVENING
     Route: 048
  6. INSULIN [Concomitant]
     Active Substance: INSULIN NOS
     Indication: TYPE 2 DIABETES MELLITUS
     Route: 058

REACTIONS (17)
  - Neck pain [Recovering/Resolving]
  - Gamma-glutamyltransferase increased [Recovering/Resolving]
  - Diarrhoea [Recovering/Resolving]
  - Drug-induced liver injury [Recovering/Resolving]
  - Abdominal pain [Recovering/Resolving]
  - Asthenia [Recovering/Resolving]
  - Blood creatine increased [Recovering/Resolving]
  - Chills [Recovering/Resolving]
  - General physical health deterioration [Recovering/Resolving]
  - Renal failure [Recovering/Resolving]
  - Glomerular filtration rate decreased [Recovering/Resolving]
  - Alanine aminotransferase increased [Recovering/Resolving]
  - Mouth haemorrhage [Recovering/Resolving]
  - Blood alkaline phosphatase increased [Recovering/Resolving]
  - Arthralgia [Recovering/Resolving]
  - Blood urea increased [Recovering/Resolving]
  - Musculoskeletal pain [Recovering/Resolving]

NARRATIVE: CASE EVENT DATE: 20160818
